FAERS Safety Report 4846660-2 (Version None)
Quarter: 2005Q4

REPORT INFORMATION
  Report Type: 
  Country: None (occurrence: None)
  Receive Date: 20051201
  Receipt Date: 20051116
  Transmission Date: 20060501
  Serious: Yes (Other)
  Sender: FDA-Public Use
  Company Number: 2005-0008944

PATIENT
  Age: 42 Year
  Sex: Male
  Weight: 67 kg

DRUGS (3)
  1. TENOFOVIR DF (TENOFOVIR DISOPROXIL FUMARATE) (300 MG) [Suspect]
     Indication: HEPATITIS B
     Dosage: 1 IN 1 D, ORAL
     Route: 048
     Dates: start: 20050920
  2. SIMVASTATIN [Concomitant]
  3. ASPIRIN [Concomitant]

REACTIONS (4)
  - BLOOD ALBUMIN DECREASED [None]
  - BLOOD AMYLASE INCREASED [None]
  - CONDITION AGGRAVATED [None]
  - HEPATITIS B [None]
